FAERS Safety Report 4935601-5 (Version None)
Quarter: 2006Q1

REPORT INFORMATION
  Report Type: 
  Country: None (occurrence: None)
  Receive Date: 20060307
  Receipt Date: 20050916
  Transmission Date: 20060701
  Serious: No
  Sender: FDA-Public Use
  Company Number: US-GLAXOSMITHKLINE-A0574553A

PATIENT
  Age: 76 Year
  Sex: Male

DRUGS (4)
  1. REQUIP [Suspect]
     Indication: RESTLESS LEGS SYNDROME
     Dosage: .5MG PER DAY
     Route: 048
  2. ALTACE [Concomitant]
  3. GLUCOPHAGE [Concomitant]
  4. MOBIC [Concomitant]

REACTIONS (1)
  - MUSCLE TIGHTNESS [None]
